FAERS Safety Report 9223211 (Version 1)
Quarter: 2013Q2

REPORT INFORMATION
  Report Type: Spontaneous
  Country: ES (occurrence: ES)
  Receive Date: 20130410
  Receipt Date: 20130410
  Transmission Date: 20140414
  Serious: Yes (Hospitalization)
  Sender: FDA-Public Use
  Company Number: ES-JNJFOC-20130402296

PATIENT
  Age: 30 Year
  Sex: Male

DRUGS (1)
  1. XEPLION [Suspect]
     Indication: SCHIZOPHRENIA
     Dosage: PALIPERIDONE PALMITATE INJECTIONS ADMINISTERED ON DAY 1, DAY 6 AND DAY 28.
     Route: 030
     Dates: start: 2013

REACTIONS (3)
  - Hallucination [Unknown]
  - Altered state of consciousness [Unknown]
  - Inappropriate affect [Unknown]
